FAERS Safety Report 14560002 (Version 5)
Quarter: 2019Q3

REPORT INFORMATION
  Report Type: Report from Study
  Country: None (occurrence: FR)
  Receive Date: 20180221
  Receipt Date: 20190711
  Transmission Date: 20191004
  Serious: Yes (Death, Hospitalization, Disabling, Other)
  Sender: FDA-Public Use
  Company Number: FR-ABBVIE-18K-056-2257137-00

PATIENT
  Age: 79 Year
  Sex: Female

DRUGS (4)
  1. DUODOPA [Suspect]
     Active Substance: CARBIDOPA\LEVODOPA
     Indication: PARKINSON^S DISEASE
     Dosage: MD : 12 ML ED : 1 ML FLOW RATE DURING THE DAY: 3 ML/H
     Route: 050
     Dates: start: 20171101
  2. DUODOPA [Suspect]
     Active Substance: CARBIDOPA\LEVODOPA
     Dosage: CONTINUOUS FLOW RATE (DURING THE DAY) 3.5 ML/H
     Route: 050
  3. SEROPLEX [Concomitant]
     Active Substance: ESCITALOPRAM OXALATE
     Indication: PRODUCT USED FOR UNKNOWN INDICATION
     Route: 065
  4. MODOPAR [Concomitant]
     Active Substance: BENSERAZIDE HYDROCHLORIDE\LEVODOPA
     Indication: PARKINSON^S DISEASE
     Dosage: 125+250
     Route: 065

REACTIONS (16)
  - Hypertension [Unknown]
  - Disease risk factor [Not Recovered/Not Resolved]
  - Musculoskeletal disorder [Unknown]
  - Nausea [Not Recovered/Not Resolved]
  - Bedridden [Not Recovered/Not Resolved]
  - Gait disturbance [Recovering/Resolving]
  - Diarrhoea [Recovered/Resolved]
  - Gastroenteritis [Fatal]
  - Dehydration [Fatal]
  - Musculoskeletal stiffness [Unknown]
  - Hallucination, auditory [Not Recovered/Not Resolved]
  - Hallucination, visual [Not Recovered/Not Resolved]
  - Device issue [Unknown]
  - General physical health deterioration [Fatal]
  - Food poisoning [Not Recovered/Not Resolved]
  - Fall [Not Recovered/Not Resolved]

NARRATIVE: CASE EVENT DATE: 20180216
